FAERS Safety Report 19531505 (Version 4)
Quarter: 2021Q4

REPORT INFORMATION
  Report Type: Report from Study
  Country: JP (occurrence: JP)
  Receive Date: 20210713
  Receipt Date: 20211027
  Transmission Date: 20220303
  Serious: Yes (Other)
  Sender: FDA-Public Use
  Company Number: JP-ONO-2021JP016623

PATIENT
  Age: 49 Year
  Sex: Female
  Weight: 67 kg

DRUGS (6)
  1. BRAFTOVI [Suspect]
     Active Substance: ENCORAFENIB
     Indication: Malignant melanoma
     Dosage: 450 MG, EVERYDAY
     Route: 048
     Dates: start: 20200311, end: 20200316
  2. BRAFTOVI [Suspect]
     Active Substance: ENCORAFENIB
     Dosage: 450 MG, EVERYDAY
     Route: 048
     Dates: start: 20200318, end: 20200916
  3. BRAFTOVI [Suspect]
     Active Substance: ENCORAFENIB
     Dosage: 450 MG, EVERYDAY
     Route: 048
     Dates: start: 20200923, end: 20210311
  4. MEKTOVI [Suspect]
     Active Substance: BINIMETINIB
     Indication: Malignant melanoma
     Dosage: 90 MG, EVERYDAY
     Route: 048
     Dates: start: 20200311, end: 20200316
  5. MEKTOVI [Suspect]
     Active Substance: BINIMETINIB
     Dosage: 90 MG, EVERYDAY
     Route: 048
     Dates: start: 20200318, end: 20200916
  6. MEKTOVI [Suspect]
     Active Substance: BINIMETINIB
     Dosage: 90 MG, EVERYDAY
     Route: 048
     Dates: start: 20200923, end: 20210311

REACTIONS (7)
  - Large intestinal ulcer [Recovering/Resolving]
  - Syncope [Recovered/Resolved]
  - Macular detachment [Recovered/Resolved]
  - Melaena [Recovering/Resolving]
  - Alopecia [Recovered/Resolved]
  - Visual impairment [Recovered/Resolved]
  - Erythema [Recovering/Resolving]

NARRATIVE: CASE EVENT DATE: 20200316
